FAERS Safety Report 7306460-0 (Version None)
Quarter: 2011Q1

REPORT INFORMATION
  Report Type: 
  Country: None (occurrence: None)
  Receive Date: 20110210
  Receipt Date: 20110125
  Transmission Date: 20110831
  Serious: Yes (Hospitalization)
  Sender: FDA-Public Use
  Company Number: B0697722A

PATIENT
  Age: 55 Year
  Sex: Male

DRUGS (5)
  1. ZIDOVUDINE [Suspect]
     Indication: HIV INFECTION
  2. ABACAVIR SULFATE [Suspect]
     Indication: HIV INFECTION
  3. EFAVIRENZ [Suspect]
     Indication: HIV INFECTION
  4. LOPINAVIR AND RITONAVIR [Concomitant]
     Indication: HIV INFECTION
  5. COMBIVIR [Suspect]
     Indication: HIV INFECTION

REACTIONS (13)
  - TARDIVE DYSKINESIA [None]
  - AFFECT LABILITY [None]
  - DISORIENTATION [None]
  - CSF PROTEIN INCREASED [None]
  - ENCEPHALOPATHY [None]
  - MENINGITIS STAPHYLOCOCCAL [None]
  - DISTURBANCE IN ATTENTION [None]
  - DYSARTHRIA [None]
  - COGNITIVE DISORDER [None]
  - MOBILITY DECREASED [None]
  - URINARY INCONTINENCE [None]
  - CONFUSIONAL STATE [None]
  - FAECAL INCONTINENCE [None]
